FAERS Safety Report 10422759 (Version 1)
Quarter: 2014Q3

REPORT INFORMATION
  Report Type: Spontaneous
  Country: US (occurrence: US)
  Receive Date: 20140902
  Receipt Date: 20140902
  Transmission Date: 20150326
  Serious: Yes (Other)
  Sender: FDA-Public Use
  Company Number: US-UCBSA-2014010072

PATIENT
  Age: 53 Year
  Sex: Female

DRUGS (2)
  1. LAMICTAL [Suspect]
     Active Substance: LAMOTRIGINE
     Indication: CONVULSION
     Dosage: 200 MG
     Dates: start: 20130319
  2. VIMPAT [Suspect]
     Active Substance: LACOSAMIDE
     Dosage: UNK DOSE, 2X/DAY (BID)

REACTIONS (4)
  - Balance disorder [Unknown]
  - Fall [Unknown]
  - Road traffic accident [Unknown]
  - Treatment noncompliance [Unknown]

NARRATIVE: CASE EVENT DATE: 20131005
